FAERS Safety Report 5993482-5 (Version None)
Quarter: 2008Q4

REPORT INFORMATION
  Report Type: 
  Country: None (occurrence: None)
  Receive Date: 20081212
  Receipt Date: 20081203
  Transmission Date: 20090506
  Serious: Yes (Hospitalization)
  Sender: FDA-Public Use
  Company Number: FR-BAYER-200832079GPV

PATIENT
  Age: 46 Year
  Sex: Female

DRUGS (3)
  1. MIRENA [Suspect]
     Indication: CONTRACEPTION
     Route: 015
  2. XANAX [Concomitant]
     Indication: ANXIETY
     Route: 048
  3. SEROPLEX [Concomitant]
     Indication: DEPRESSION
     Dosage: TOTAL DAILY DOSE: 1 DF
     Route: 048

REACTIONS (1)
  - PULMONARY EMBOLISM [None]
